FAERS Safety Report 20843951 (Version 1)
Quarter: 2022Q2

REPORT INFORMATION
  Report Type: Spontaneous
  Country: US (occurrence: None)
  Receive Date: 20220517
  Receipt Date: 20220517
  Transmission Date: 20220720
  Serious: No
  Sender: FDA-Public Use
  Company Number: None

PATIENT
  Sex: Female

DRUGS (1)
  1. ENBREL [Suspect]
     Active Substance: ETANERCEPT
     Indication: Back pain
     Dosage: FREQUENCY : WEEKLY;?
     Route: 058
     Dates: start: 20220418

REACTIONS (2)
  - Injection site rash [None]
  - Therapeutic product effect delayed [None]
